FAERS Safety Report 13627381 (Version 6)
Quarter: 2020Q1

REPORT INFORMATION
  Report Type: Spontaneous
  Country: US (occurrence: US)
  Receive Date: 20170608
  Receipt Date: 20200120
  Transmission Date: 20200409
  Serious: Yes (Other)
  Sender: FDA-Public Use
  Company Number: US-PFIZER INC-2017240661

PATIENT
  Age: 59 Year
  Sex: Female

DRUGS (1)
  1. XELJANZ XR [Suspect]
     Active Substance: TOFACITINIB CITRATE
     Indication: RHEUMATOID ARTHRITIS
     Dosage: 11 MG, 1X/DAY
     Route: 048
     Dates: start: 201907

REACTIONS (9)
  - Bronchitis [Unknown]
  - Osteomyelitis [Unknown]
  - Fatigue [Unknown]
  - Malaise [Unknown]
  - Product dose omission [Unknown]
  - Oropharyngeal pain [Unknown]
  - Chills [Unknown]
  - Sinusitis [Unknown]
  - Respiratory symptom [Recovering/Resolving]
